FAERS Safety Report 23733056 (Version 2)
Quarter: 2024Q2

REPORT INFORMATION
  Report Type: Spontaneous
  Country: NL (occurrence: NL)
  Receive Date: 20240411
  Receipt Date: 20240425
  Transmission Date: 20240716
  Serious: Yes (Life-Threatening, Hospitalization)
  Sender: FDA-Public Use
  Company Number: NL-TEVA-VS-3180069

PATIENT
  Age: 48 Year
  Sex: Female

DRUGS (5)
  1. LITHIUM [Suspect]
     Active Substance: LITHIUM
     Indication: Suicide attempt
     Dosage: 270 TABLETS OF LITHIUM (21G)
     Route: 048
  2. TEMAZEPAM [Suspect]
     Active Substance: TEMAZEPAM
     Indication: Suicide attempt
     Route: 048
  3. NORTRIPTYLINE [Suspect]
     Active Substance: NORTRIPTYLINE
     Indication: Suicide attempt
     Route: 048
  4. LORAZEPAM [Suspect]
     Active Substance: LORAZEPAM
     Indication: Suicide attempt
     Route: 048
  5. ARIPIPRAZOLE [Suspect]
     Active Substance: ARIPIPRAZOLE
     Indication: Suicide attempt
     Route: 048

REACTIONS (5)
  - Toxicity to various agents [Recovering/Resolving]
  - Electrocardiogram QRS complex prolonged [Recovering/Resolving]
  - Gastrointestinal motility disorder [Unknown]
  - Intentional overdose [Unknown]
  - Toxicity to various agents [Recovering/Resolving]
